FAERS Safety Report 14910195 (Version 1)
Quarter: 2018Q2

REPORT INFORMATION
  Report Type: Spontaneous
  Country: US (occurrence: US)
  Receive Date: 20180517
  Receipt Date: 20180517
  Transmission Date: 20180711
  Serious: No
  Sender: FDA-Public Use
  Company Number: PHEH2018US018565

PATIENT
  Sex: Male

DRUGS (1)
  1. CLONAZEPAM. [Suspect]
     Active Substance: CLONAZEPAM
     Indication: PRODUCT USED FOR UNKNOWN INDICATION
     Dosage: 0.5 MG, BID (100 TABLET)
     Route: 065

REACTIONS (6)
  - Drug ineffective [Unknown]
  - Fatigue [Unknown]
  - Restlessness [Unknown]
  - Gastric disorder [Unknown]
  - Nervousness [Unknown]
  - Formication [Unknown]
